FAERS Safety Report 9173638 (Version 1)
Quarter: 2013Q1

REPORT INFORMATION
  Report Type: Spontaneous
  Country: US (occurrence: US)
  Receive Date: 20130320
  Receipt Date: 20130320
  Transmission Date: 20140127
  Serious: No
  Sender: FDA-Public Use
  Company Number: US-009507513-1303USA008545

PATIENT
  Age: 58 Year
  Sex: Male

DRUGS (3)
  1. VICTRELIS [Suspect]
  2. REBETOL [Suspect]
  3. PEGASYS [Suspect]

REACTIONS (2)
  - Viral load increased [Unknown]
  - Drug ineffective [Unknown]
